FAERS Safety Report 14103085 (Version 1)
Quarter: 2017Q4

REPORT INFORMATION
  Report Type: Spontaneous
  Country: US (occurrence: US)
  Receive Date: 20171018
  Receipt Date: 20171018
  Transmission Date: 20180321
  Serious: No
  Sender: FDA-Public Use
  Company Number: US-BAYER-2017-200099

PATIENT
  Age: 22 Year
  Sex: Female

DRUGS (1)
  1. GADAVIST [Suspect]
     Active Substance: GADOBUTROL
     Dosage: 15 ML, ONCE
     Route: 042

REACTIONS (5)
  - Facial pain [None]
  - Throat irritation [None]
  - Contrast media allergy [None]
  - Burning sensation [None]
  - Odynophagia [None]

NARRATIVE: CASE EVENT DATE: 20171012
